FAERS Safety Report 6303203-4 (Version None)
Quarter: 2009Q3

REPORT INFORMATION
  Report Type: 
  Country: None (occurrence: None)
  Receive Date: 20090810
  Receipt Date: 20081231
  Transmission Date: 20100115
  Serious: No
  Sender: FDA-Public Use
  Company Number: A0762083A

PATIENT
  Age: 40 Year
  Sex: Male

DRUGS (3)
  1. PAXIL [Suspect]
     Dosage: 20MG PER DAY
     Route: 048
     Dates: start: 20010101
  2. PAXIL [Suspect]
     Route: 048
  3. BUSPAR [Concomitant]

REACTIONS (6)
  - BRUXISM [None]
  - DRUG INEFFECTIVE [None]
  - EJACULATION FAILURE [None]
  - EXPIRED DRUG ADMINISTERED [None]
  - INSOMNIA [None]
  - WITHDRAWAL SYNDROME [None]
